FAERS Safety Report 9749216 (Version 2)
Quarter: 2014Q1

REPORT INFORMATION
  Report Type: Spontaneous
  Country: US (occurrence: US)
  Receive Date: 20131212
  Receipt Date: 20140128
  Transmission Date: 20141002
  Serious: Yes (Other)
  Sender: FDA-Public Use
  Company Number: US-INCYTE CORPORATION-2013IN002662

PATIENT
  Age: 73 Year
  Sex: Male
  Weight: 72.21 kg

DRUGS (10)
  1. JAKAFI [Suspect]
     Indication: MYELOFIBROSIS
     Dosage: 5 MG, BID
     Route: 048
     Dates: start: 20120216, end: 20120322
  2. JAKAFI [Suspect]
     Dosage: 10 MG, BID
     Route: 048
     Dates: start: 20120322, end: 20120524
  3. JAKAFI [Suspect]
     Dosage: 15 MG, BID
     Route: 048
     Dates: start: 20120524, end: 20120724
  4. JAKAFI [Suspect]
     Dosage: 20 MG, BID
     Route: 048
     Dates: start: 20120724, end: 20130228
  5. METOPROLOL [Concomitant]
     Dosage: 25 MG, QD
  6. OMEPRAZOLE [Concomitant]
     Dosage: 20 MG, QD
  7. SIMVASTATIN [Concomitant]
     Dosage: 10 MG, QD
  8. FLOMAX                             /01280302/ [Concomitant]
     Dosage: 0.4 MG, QD
  9. FINASTERIDE [Concomitant]
     Dosage: 5 MG, QD
  10. EXJADE [Concomitant]
     Dosage: 125 MG, QD

REACTIONS (5)
  - Iron overload [Unknown]
  - Platelet count decreased [Recovering/Resolving]
  - Fatigue [Unknown]
  - Drug ineffective [Unknown]
  - Epistaxis [Recovered/Resolved]
